FAERS Safety Report 7948575-X (Version None)
Quarter: 2011Q4

REPORT INFORMATION
  Report Type: 
  Country: None (occurrence: None)
  Receive Date: 20111128
  Receipt Date: 20111128
  Transmission Date: 20120403
  Serious: Yes (Hospitalization)
  Sender: FDA-Public Use
  Company Number: None

PATIENT
  Sex: Female

DRUGS (2)
  1. FORTEC [Suspect]
     Indication: OSTEOPOROSIS
     Dosage: 20MCG DAILY SQ
     Route: 058
     Dates: start: 20100701, end: 20100701
  2. FORTEC [Suspect]
     Indication: OSTEOPOROSIS
     Dosage: 20MCG DAILY SQ
     Route: 058
     Dates: start: 20110901, end: 20111101

REACTIONS (3)
  - OEDEMA PERIPHERAL [None]
  - LETHARGY [None]
  - BURNING SENSATION [None]
